FAERS Safety Report 17600231 (Version 1)
Quarter: 2020Q1

REPORT INFORMATION
  Report Type: Report from Study
  Country: US (occurrence: US)
  Receive Date: 20200330
  Receipt Date: 20200330
  Transmission Date: 20200409
  Serious: Yes (Other)
  Sender: FDA-Public Use
  Company Number: US-HORIZON-PEN-0175-2020

PATIENT
  Age: 54 Year
  Sex: Female

DRUGS (1)
  1. PENNSAID [Suspect]
     Active Substance: DICLOFENAC SODIUM
     Indication: PAIN IN EXTREMITY
     Dosage: TWO PUMPS TO AFFECTED AREA TWICE DAILY

REACTIONS (3)
  - Hallucination [Unknown]
  - Off label use [Recovered/Resolved]
  - Palpitations [Unknown]
